FAERS Safety Report 9486454 (Version 1)
Quarter: 2013Q3

REPORT INFORMATION
  Report Type: Spontaneous
  Country: US (occurrence: None)
  Receive Date: 20130827
  Receipt Date: 20130827
  Transmission Date: 20140515
  Serious: No
  Sender: FDA-Public Use
  Company Number: None

PATIENT
  Age: 50 Year
  Sex: Male
  Weight: 170.1 kg

DRUGS (1)
  1. CIPROFLOXACIN [Suspect]
     Indication: EYE INFECTION
     Dosage: 1 DROP FOURT TIMES DAILY INTO THE EYE
     Dates: start: 20130826

REACTIONS (1)
  - Product dropper issue [None]
